FAERS Safety Report 13332933 (Version 1)
Quarter: 2017Q1

REPORT INFORMATION
  Report Type: Spontaneous
  Country: US (occurrence: US)
  Receive Date: 20170314
  Receipt Date: 20170314
  Transmission Date: 20170428
  Serious: No
  Sender: FDA-Public Use
  Company Number: US-PFIZER INC-2017109153

PATIENT
  Age: 21 Year
  Sex: Male
  Weight: 124.74 kg

DRUGS (1)
  1. ADVIL [Suspect]
     Active Substance: IBUPROFEN
     Indication: TOOTHACHE
     Dosage: UNK

REACTIONS (3)
  - Somnolence [Unknown]
  - Dizziness [Unknown]
  - Intentional product misuse [Unknown]
